FAERS Safety Report 21327430 (Version 4)
Quarter: 2023Q1

REPORT INFORMATION
  Report Type: Spontaneous
  Country: CA (occurrence: CA)
  Receive Date: 20220913
  Receipt Date: 20230309
  Transmission Date: 20230418
  Serious: Yes (Other)
  Sender: FDA-Public Use
  Company Number: CA-CELLTRION INC.-2021CA015022

PATIENT

DRUGS (8)
  1. INFLECTRA [Suspect]
     Active Substance: INFLIXIMAB-DYYB
     Indication: Crohn^s disease
     Dosage: 510 MG (5MG/KG) AT WEEK 0, 2 AND 6 WEEKS THEN EVERY 8 WEEKS
     Route: 042
     Dates: start: 20210617, end: 2022
  2. INFLECTRA [Suspect]
     Active Substance: INFLIXIMAB-DYYB
     Dosage: 510 MG (5MG/KG) AT WEEK 0, 2 AND 6 WEEKS THEN EVERY 8 WEEKS
     Route: 042
     Dates: start: 20210630
  3. INFLECTRA [Suspect]
     Active Substance: INFLIXIMAB-DYYB
     Dosage: 510 MG (5MG/KG) AT WEEK 0, 2 AND 6 WEEKS THEN EVERY 8 WEEKS
     Route: 042
     Dates: start: 20220622
  4. INFLECTRA [Suspect]
     Active Substance: INFLIXIMAB-DYYB
     Dosage: 10 MG/KG, RE-INDUCTION AT WEEK 6, THEN EVERY 8 WEEKS
     Route: 042
     Dates: start: 2022
  5. INFLECTRA [Suspect]
     Active Substance: INFLIXIMAB-DYYB
     Dosage: 10 MG/KG, RE-INDUCTION AT WEEK 6, THEN EVERY 8 WEEKS
     Route: 042
     Dates: start: 20220928
  6. INFLECTRA [Suspect]
     Active Substance: INFLIXIMAB-DYYB
     Dosage: 10 MG/KG, RE-INDUCTION AT WEEK 6, THEN EVERY 8 WEEKS
     Route: 042
     Dates: start: 20220928
  7. INFLECTRA [Suspect]
     Active Substance: INFLIXIMAB-DYYB
     Dosage: 10 MG/KG, RE-INDUCTION AT WEEK 6, THEN EVERY 8 WEEKS
     Route: 042
     Dates: start: 20220928
  8. INFLECTRA [Suspect]
     Active Substance: INFLIXIMAB-DYYB
     Dosage: 945 MG, (10 MG/KG), RE-INDUCTION AT WEEK 6, THEN EVERY 8 WEEKS
     Route: 042
     Dates: start: 20230228

REACTIONS (8)
  - Crohn^s disease [Not Recovered/Not Resolved]
  - Off label use [Unknown]
  - Inappropriate schedule of product administration [Unknown]
  - Drug level below therapeutic [Unknown]
  - Poor venous access [Unknown]
  - Weight decreased [Not Recovered/Not Resolved]
  - Off label use [Unknown]
  - Intentional product use issue [Unknown]

NARRATIVE: CASE EVENT DATE: 20210728
